FAERS Safety Report 25996582 (Version 1)
Quarter: 2025Q4

REPORT INFORMATION
  Report Type: Spontaneous
  Country: EU (occurrence: EU)
  Receive Date: 20251104
  Receipt Date: 20251104
  Transmission Date: 20260117
  Serious: Yes (Hospitalization, Other)
  Sender: ABBVIE
  Company Number: EU-GalenikaInternational-Dexamethasone-14102025

PATIENT
  Age: 29 Year
  Sex: Female

DRUGS (8)
  1. TIMOLOL [Suspect]
     Active Substance: TIMOLOL
     Indication: Glaucoma
     Route: 047
  2. BRIMONIDINE [Suspect]
     Active Substance: BRIMONIDINE TARTRATE
     Indication: Glaucoma
     Route: 065
  3. DEXAMETHASONE [Suspect]
     Active Substance: DEXAMETHASONE
     Indication: Antiinflammatory therapy
     Dosage: DOSAGE: 4 MG/ML
     Route: 061
     Dates: start: 2025, end: 2025
  4. LATANOPROST [Suspect]
     Active Substance: LATANOPROST
     Indication: Glaucoma
     Route: 065
  5. SULFASALAZINE [Concomitant]
     Active Substance: SULFASALAZINE
     Indication: Iridocyclitis
     Route: 065
  6. DORZOLAMIDE [Suspect]
     Active Substance: DORZOLAMIDE
     Indication: Glaucoma
     Route: 065
  7. PREDNISONE [Suspect]
     Active Substance: PREDNISONE
     Indication: Antiinflammatory therapy
     Route: 065
     Dates: start: 2025, end: 2025
  8. TROPICAMIDE [Concomitant]
     Active Substance: TROPICAMIDE
     Indication: Iridocyclitis
     Route: 065

REACTIONS (4)
  - Cataract [Recovered/Resolved]
  - Drug ineffective [Unknown]
  - Glaucoma [Unknown]
  - Drug ineffective [Recovered/Resolved]
